FAERS Safety Report 11512051 (Version 1)
Quarter: 2015Q3

REPORT INFORMATION
  Report Type: Report from Study
  Country: CA (occurrence: CA)
  Receive Date: 20150916
  Receipt Date: 20150916
  Transmission Date: 20151125
  Serious: Yes (Hospitalization, Disabling, Other)
  Sender: FDA-Public Use
  Company Number: CA-ABBVIE-15K-028-1442028-00

PATIENT
  Age: 23 Year
  Sex: Female
  Weight: 80 kg

DRUGS (1)
  1. HUMIRA [Suspect]
     Active Substance: ADALIMUMAB
     Indication: CROHN^S DISEASE
     Route: 058
     Dates: start: 20150425, end: 20150815

REACTIONS (4)
  - Anal fissure [Not Recovered/Not Resolved]
  - Drug resistance [Unknown]
  - Anal abscess [Recovered/Resolved with Sequelae]
  - Anal sphincter atony [Not Recovered/Not Resolved]

NARRATIVE: CASE EVENT DATE: 2015
